FAERS Safety Report 10428860 (Version 1)
Quarter: 2014Q3

REPORT INFORMATION
  Report Type: Report from Study
  Country: US (occurrence: US)
  Receive Date: 20140904
  Receipt Date: 20140904
  Transmission Date: 20150326
  Serious: Yes (Other)
  Sender: FDA-Public Use
  Company Number: US-ROCHE-1456708

PATIENT
  Sex: Male
  Weight: 20 kg

DRUGS (3)
  1. NUTROPIN AQ [Suspect]
     Active Substance: SOMATROPIN
     Indication: GROWTH HORMONE DEFICIENCY
     Route: 058
  2. NUTROPIN AQ [Suspect]
     Active Substance: SOMATROPIN
     Indication: BODY HEIGHT BELOW NORMAL
  3. NUTROPIN AQ [Suspect]
     Active Substance: SOMATROPIN
     Indication: SILVER-RUSSELL SYNDROME

REACTIONS (5)
  - Sinusitis [Recovered/Resolved]
  - Sinus headache [Not Recovered/Not Resolved]
  - Phimosis [Unknown]
  - Overweight [Unknown]
  - Abdominal pain upper [Unknown]
